FAERS Safety Report 8288062-5 (Version None)
Quarter: 2012Q2

REPORT INFORMATION
  Report Type: 
  Country: None (occurrence: None)
  Receive Date: 20120416
  Receipt Date: 20120410
  Transmission Date: 20120825
  Serious: Yes (Hospitalization, Other)
  Sender: FDA-Public Use
  Company Number: US-AMGEN-USASP2011060719

PATIENT
  Age: 74 Year
  Sex: Female
  Weight: 61.451 kg

DRUGS (8)
  1. DIOVAN HCT [Concomitant]
     Dosage: 160 MG, UNK
     Dates: start: 20111114
  2. FISH OIL [Concomitant]
     Dosage: 2 UNK, QD
     Route: 048
  3. NIACIN [Concomitant]
     Indication: HYPERLIPIDAEMIA
     Dosage: 500 MG, QHS
     Route: 048
  4. VITAMIN B COMPLEX CAP [Concomitant]
     Dosage: 1 UNK, QD
     Route: 048
  5. PROLIA [Suspect]
     Indication: OSTEOPOROSIS POSTMENOPAUSAL
     Dosage: 60 MG, Q6MO
     Route: 030
     Dates: start: 20110101, end: 20110701
  6. DIOVAN HCT [Concomitant]
     Indication: HYPERTENSION
     Dosage: 1 UNK, QD
     Route: 048
     Dates: end: 20111114
  7. CALCIUM + VITAMIN D [Concomitant]
     Dosage: 1 UNK, BID
  8. DIOVAN [Concomitant]
     Indication: HYPERTENSION
     Dosage: 160 MG, QD
     Dates: start: 20111114

REACTIONS (55)
  - HYPONATRAEMIA [None]
  - BLOOD ANTIDIURETIC HORMONE INCREASED [None]
  - DRUG HYPERSENSITIVITY [None]
  - RASH ERYTHEMATOUS [None]
  - DERMATITIS CONTACT [None]
  - DRY SKIN [None]
  - STRESS [None]
  - EYE IRRITATION [None]
  - LACRIMATION INCREASED [None]
  - ARTHRITIS [None]
  - LACUNAR INFARCTION [None]
  - RHINORRHOEA [None]
  - ANXIETY [None]
  - PSYCHIATRIC SYMPTOM [None]
  - KYPHOSIS [None]
  - RASH MACULO-PAPULAR [None]
  - VOMITING [None]
  - RASH GENERALISED [None]
  - THROMBOCYTOSIS [None]
  - EYE PRURITUS [None]
  - EXPOSURE TO ALLERGEN [None]
  - BLOOD OSMOLARITY DECREASED [None]
  - RASH PRURITIC [None]
  - LOCAL SWELLING [None]
  - EMOTIONAL DISTRESS [None]
  - LOCALISED INFECTION [None]
  - URTICARIA [None]
  - BASAL CELL CARCINOMA [None]
  - METABOLIC DISORDER [None]
  - METABOLIC ENCEPHALOPATHY [None]
  - HYPOPHOSPHATAEMIA [None]
  - ALLERGY TO CHEMICALS [None]
  - RENAL FAILURE ACUTE [None]
  - FATIGUE [None]
  - VISUAL ACUITY REDUCED [None]
  - FEAR [None]
  - HYPERSENSITIVITY [None]
  - EYELID OEDEMA [None]
  - ERYTHEMA OF EYELID [None]
  - HYPERKALAEMIA [None]
  - CELLULITIS [None]
  - NOCTURIA [None]
  - MUSCULAR WEAKNESS [None]
  - WEIGHT INCREASED [None]
  - BACK PAIN [None]
  - RASH [None]
  - DEPRESSION [None]
  - CARDIOMEGALY [None]
  - ANGIOKERATOMA [None]
  - ACROCHORDON [None]
  - TEARFULNESS [None]
  - TEMPERATURE INTOLERANCE [None]
  - SKIN EXFOLIATION [None]
  - ALLERGY TO METALS [None]
  - ACTIVITIES OF DAILY LIVING IMPAIRED [None]
